FAERS Safety Report 5011825-6 (Version None)
Quarter: 2006Q2

REPORT INFORMATION
  Report Type: 
  Country: None (occurrence: None)
  Receive Date: 20060526
  Receipt Date: 20060320
  Transmission Date: 20061013
  Serious: Yes (Death)
  Sender: FDA-Public Use
  Company Number: US-AVENTIS-200612799US

PATIENT
  Age: 66 Year
  Sex: Male

DRUGS (6)
  1. RIFAMPIN [Suspect]
     Indication: TUBERCULOSIS
     Dates: start: 20010404, end: 20010528
  2. PYRAZINAMIDE [Suspect]
     Indication: TUBERCULOSIS
     Dates: start: 20010404, end: 20010528
  3. LISINOPRIL [Concomitant]
     Dosage: DOSE: UNK
  4. METFORMIN [Concomitant]
     Dosage: DOSE: UNK
  5. COLCHICINE [Concomitant]
     Dosage: DOSE: UNK
  6. ASPIRIN [Concomitant]

REACTIONS (9)
  - ACTIVATED PARTIAL THROMBOPLASTIN TIME PROLONGED [None]
  - ALANINE AMINOTRANSFERASE INCREASED [None]
  - ASPARTATE AMINOTRANSFERASE INCREASED [None]
  - BLOOD ALKALINE PHOSPHATASE INCREASED [None]
  - BLOOD BILIRUBIN INCREASED [None]
  - FATIGUE [None]
  - HEPATOCELLULAR DAMAGE [None]
  - NAUSEA [None]
  - PROTHROMBIN TIME PROLONGED [None]
